FAERS Safety Report 9305516 (Version 1)
Quarter: 2012Q4

REPORT INFORMATION
  Report Type: Spontaneous
  Country: TR (occurrence: None)
  Receive Date: 20121218
  Receipt Date: 20121218
  Transmission Date: 20130627
  Serious: Yes (Death, Other)
  Sender: FDA-Public Use
  Company Number: UTC-025298

PATIENT
  Age: 18 Year
  Sex: Female

DRUGS (10)
  1. REMODULIN (INJECTION FOR INFUSION) (TREPROSTINIL SODIUM) [Suspect]
     Indication: PULMONARY HYPERTENSION
     Dosage: 1.25 ng/kg/dk continuous, Subcutaneous
     Route: 058
     Dates: start: 20121001
  2. BOSENTAN [Concomitant]
  3. SILDENAFIL CITRATE [Concomitant]
  4. FUROSEMIDE [Concomitant]
  5. PROPRANOLOL [Concomitant]
  6. ENALAPRILAT [Concomitant]
  7. DIGOXIN [Concomitant]
  8. DOPAMINE [Concomitant]
  9. DOBUTAMINE [Concomitant]
  10. COUMADINE (WARFARIN SODIUM) (UNKNOWN) [Concomitant]

REACTIONS (4)
  - Cardiac failure chronic [None]
  - Low cardiac output syndrome [None]
  - Renal failure acute [None]
  - Cardio-respiratory arrest [None]
